FAERS Safety Report 5046827-7 (Version None)
Quarter: 2006Q2

REPORT INFORMATION
  Report Type: 
  Country: None (occurrence: None)
  Receive Date: 20060630
  Receipt Date: 20060623
  Transmission Date: 20061013
  Serious: Yes (Death)
  Sender: FDA-Public Use
  Company Number: HQWYE348523JUN06

PATIENT
  Age: 58 Year
  Sex: Male

DRUGS (2)
  1. AVLOCARDYL (PROPRANOLOL HYDROCHLORIDE, TABLET) [Suspect]
  2. ZOMIG [Suspect]
     Dosage: 2.5 MG TABLET, FREQUENCY NOT PROVIDED ORAL
     Route: 048

REACTIONS (1)
  - ROAD TRAFFIC ACCIDENT [None]
